FAERS Safety Report 25134877 (Version 2)
Quarter: 2025Q3

REPORT INFORMATION
  Report Type: Report from Study
  Country: CN (occurrence: CN)
  Receive Date: 20250328
  Receipt Date: 20250903
  Transmission Date: 20251021
  Serious: Yes (Life-Threatening, Other)
  Sender: Vantive US Healthcare
  Company Number: CN-VANTIVE-2025VAN001213

PATIENT
  Age: 70 Year
  Sex: Female
  Weight: 50 kg

DRUGS (5)
  1. SODIUM CHLORIDE\SODIUM CITRATE, UNSPECIFIED FORM [Suspect]
     Active Substance: SODIUM CHLORIDE\SODIUM CITRATE, UNSPECIFIED FORM
     Indication: Renal failure
     Route: 042
     Dates: start: 20250225, end: 20250305
  2. SODIUM CHLORIDE\SODIUM CITRATE, UNSPECIFIED FORM [Suspect]
     Active Substance: SODIUM CHLORIDE\SODIUM CITRATE, UNSPECIFIED FORM
     Indication: Electrolyte imbalance
  3. DEXTROSE\LACTIC ACID\MAGNESIUM CL\POTASSIUM CL\SODIUM BICARBONATE\SODI [Suspect]
     Active Substance: DEXTROSE\LACTIC ACID\MAGNESIUM CHLORIDE\POTASSIUM CHLORIDE\SODIUM BICARBONATE\SODIUM CHLORIDE
     Indication: Renal failure
     Route: 041
     Dates: start: 20250225, end: 20250306
  4. DEXTROSE\LACTIC ACID\MAGNESIUM CL\POTASSIUM CL\SODIUM BICARBONATE\SODI [Suspect]
     Active Substance: DEXTROSE\LACTIC ACID\MAGNESIUM CHLORIDE\POTASSIUM CHLORIDE\SODIUM BICARBONATE\SODIUM CHLORIDE
     Indication: Electrolyte imbalance
  5. UNSPECIFIED INGREDIENT [Suspect]
     Active Substance: UNSPECIFIED INGREDIENT
     Route: 065

REACTIONS (8)
  - Cardio-respiratory arrest [Recovered/Resolved with Sequelae]
  - Hypokalaemia [Not Recovered/Not Resolved]
  - Blood citric acid increased [Not Recovered/Not Resolved]
  - Hyponatraemia [Not Recovered/Not Resolved]
  - Hypomagnesaemia [Not Recovered/Not Resolved]
  - Hypercalcaemia [Not Recovered/Not Resolved]
  - Hypophosphataemia [Not Recovered/Not Resolved]
  - Hypocalcaemia [Recovered/Resolved]

NARRATIVE: CASE EVENT DATE: 20250225
